FAERS Safety Report 7898024-5 (Version None)
Quarter: 2011Q4

REPORT INFORMATION
  Report Type: 
  Country: None (occurrence: None)
  Receive Date: 20111107
  Receipt Date: 20111107
  Transmission Date: 20120403
  Serious: Yes (Death, Hospitalization)
  Sender: FDA-Public Use
  Company Number: None

PATIENT
  Sex: Male
  Weight: 79.378 kg

DRUGS (1)
  1. CIPRO [Suspect]
     Indication: SEPSIS
     Dosage: NO IDEA
     Route: 041

REACTIONS (9)
  - DELUSION [None]
  - INSOMNIA [None]
  - AGGRESSION [None]
  - FAECAL INCONTINENCE [None]
  - URINARY INCONTINENCE [None]
  - HALLUCINATION [None]
  - PAIN [None]
  - DEVICE RELATED INFECTION [None]
  - CLOSTRIDIAL INFECTION [None]
